FAERS Safety Report 9545410 (Version 1)
Quarter: 2013Q3

REPORT INFORMATION
  Report Type: Report from Study
  Country: US (occurrence: US)
  Receive Date: 20130923
  Receipt Date: 20130923
  Transmission Date: 20140515
  Serious: Yes (Hospitalization, Other)
  Sender: FDA-Public Use
  Company Number: US-US-EMD SERONO, INC.-7237940

PATIENT
  Sex: Male
  Weight: 111 kg

DRUGS (1)
  1. REBIF [Suspect]
     Indication: MULTIPLE SCLEROSIS
     Route: 058
     Dates: start: 20030823

REACTIONS (4)
  - Coronary artery occlusion [Recovered/Resolved]
  - Diabetes mellitus [Recovered/Resolved]
  - Hypertension [Unknown]
  - Blood cholesterol increased [Unknown]
